FAERS Safety Report 5262210-3 (Version None)
Quarter: 2007Q1

REPORT INFORMATION
  Report Type: 
  Country: None (occurrence: None)
  Receive Date: 20070312
  Receipt Date: 20070309
  Transmission Date: 20070707
  Serious: Yes (Death, Life-Threatening, Hospitalization)
  Sender: FDA-Public Use
  Company Number: BE-BAYER-200710975GDS

PATIENT
  Age: 84 Year
  Sex: Female

DRUGS (3)
  1. AVELOX [Suspect]
     Indication: RESPIRATORY TRACT INFECTION
     Dosage: TOTAL DAILY DOSE: 400 MG  UNIT DOSE: 400 MG
     Route: 048
  2. DIURETICUM (UNSPECIFIED) [Concomitant]
     Indication: MITRAL VALVE INCOMPETENCE
     Route: 065
  3. ANTIHYPERTENSIVUM (UNSPECIFIED) [Concomitant]
     Indication: HYPERTENSION
     Route: 065

REACTIONS (3)
  - ANAPHYLACTIC SHOCK [None]
  - CARDIO-RESPIRATORY ARREST [None]
  - RESPIRATORY TRACT INFECTION [None]
